FAERS Safety Report 4304463-1 (Version None)
Quarter: 2004Q1

REPORT INFORMATION
  Report Type: 
  Country: None (occurrence: None)
  Receive Date: 20040225
  Receipt Date: 20040225
  Transmission Date: 20041129
  Serious: Yes (Disabling)
  Sender: FDA-Public Use
  Company Number: None

PATIENT
  Age: 42 Year
  Sex: Male
  Weight: 113.3993 kg

DRUGS (4)
  1. PAXIL [Suspect]
     Indication: ANXIETY DISORDER
     Dosage: 40 MG ORAL
     Route: 048
     Dates: start: 20040101, end: 20040101
  2. PAXIL [Suspect]
     Indication: DEPRESSION
     Dosage: 40 MG ORAL
     Route: 048
     Dates: start: 20040101, end: 20040101
  3. PAXIL [Suspect]
     Indication: ANXIETY DISORDER
     Dosage: 40 MG ORAL
     Route: 048
     Dates: start: 20040102, end: 20040201
  4. PAXIL [Suspect]
     Indication: DEPRESSION
     Dosage: 40 MG ORAL
     Route: 048
     Dates: start: 20040102, end: 20040201

REACTIONS (4)
  - DRUG WITHDRAWAL SYNDROME [None]
  - HEADACHE [None]
  - INSOMNIA [None]
  - VOMITING [None]
